FAERS Safety Report 15401645 (Version 1)
Quarter: 2018Q3

REPORT INFORMATION
  Report Type: Spontaneous
  Country: US (occurrence: US)
  Receive Date: 20180914
  Receipt Date: 20180914
  Transmission Date: 20181010
  Serious: Yes (Life-Threatening, Hospitalization)
  Sender: FDA-Public Use
  Company Number: None

PATIENT
  Age: 75 Year
  Sex: Female
  Weight: 56.7 kg

DRUGS (1)
  1. OSIMERTINIB. [Suspect]
     Active Substance: OSIMERTINIB
     Indication: NON-SMALL CELL LUNG CANCER STAGE IV
     Route: 048
     Dates: start: 20180801, end: 20180906

REACTIONS (5)
  - Pneumonitis [None]
  - Respiratory failure [None]
  - Pulmonary fibrosis [None]
  - Acute respiratory distress syndrome [None]
  - Pulmonary alveolar haemorrhage [None]

NARRATIVE: CASE EVENT DATE: 20180907
